FAERS Safety Report 7475809-0 (Version None)
Quarter: 2011Q2

REPORT INFORMATION
  Report Type: 
  Country: None (occurrence: None)
  Receive Date: 20110504
  Receipt Date: 20110420
  Transmission Date: 20111010
  Serious: Yes (Other)
  Sender: FDA-Public Use
  Company Number: 031494

PATIENT
  Age: 35 Year
  Sex: Female

DRUGS (2)
  1. LAMOTRIGINE [Suspect]
     Dosage: 400
  2. KEPPRA [Suspect]
     Dosage: ENTRY PROD RX DOSAGE : 500

REACTIONS (2)
  - CONVULSION [None]
  - CONDITION AGGRAVATED [None]
